FAERS Safety Report 5107599-0 (Version None)
Quarter: 2006Q3

REPORT INFORMATION
  Report Type: 
  Country: None (occurrence: None)
  Receive Date: 20060731
  Receipt Date: 20060406
  Transmission Date: 20061208
  Serious: No
  Sender: FDA-Public Use
  Company Number: 2006PV011683

PATIENT
  Age: 56 Year
  Sex: Female
  Weight: 72.5755 kg

DRUGS (6)
  1. BYETTA [Suspect]
     Indication: DIABETES MELLITUS NON-INSULIN-DEPENDENT
     Dosage: 10 + 5 MCG;BID; SC
     Route: 058
     Dates: start: 20060203, end: 20060302
  2. BYETTA [Suspect]
     Indication: DIABETES MELLITUS NON-INSULIN-DEPENDENT
     Dosage: 10 + 5 MCG;BID; SC
     Route: 058
     Dates: start: 20060303
  3. GLUCOPHAGE [Concomitant]
  4. AMARYL [Concomitant]
  5. ACTOS [Concomitant]
  6. NOVOLOG [Concomitant]

REACTIONS (14)
  - ABDOMINAL DISTENSION [None]
  - BLOOD GLUCOSE DECREASED [None]
  - BLOOD GLUCOSE INCREASED [None]
  - DECREASED APPETITE [None]
  - DYSGEUSIA [None]
  - FEELING ABNORMAL [None]
  - HUNGER [None]
  - HYPERHIDROSIS [None]
  - NAUSEA [None]
  - THERAPEUTIC RESPONSE UNEXPECTED [None]
  - THIRST DECREASED [None]
  - TREMOR [None]
  - VOMITING [None]
  - WEIGHT DECREASED [None]
